FAERS Safety Report 5679243-5 (Version None)
Quarter: 2008Q1

REPORT INFORMATION
  Report Type: 
  Country: None (occurrence: None)
  Receive Date: 20080325
  Receipt Date: 20080314
  Transmission Date: 20080703
  Serious: Yes (Hospitalization)
  Sender: FDA-Public Use
  Company Number: CA-JNJFOC-20060502503

PATIENT
  Sex: Female
  Weight: 52.8 kg

DRUGS (6)
  1. REMICADE [Suspect]
     Indication: RHEUMATOID ARTHRITIS
     Dosage: 3 INFUSIONS
     Route: 042
  2. LEFLUNOMIDE [Concomitant]
     Indication: RHEUMATOID ARTHRITIS
     Route: 048
  3. PREDNISONE TAB [Concomitant]
     Indication: RHEUMATOID ARTHRITIS
     Route: 048
  4. TYLENOL (CAPLET) [Concomitant]
  5. LISINOPRIL [Concomitant]
  6. NORVASC [Concomitant]

REACTIONS (5)
  - BACK PAIN [None]
  - JOINT SWELLING [None]
  - PAIN [None]
  - PYREXIA [None]
  - RASH VESICULAR [None]
